FAERS Safety Report 25149820 (Version 1)
Quarter: 2025Q2

REPORT INFORMATION
  Report Type: Spontaneous
  Country: US (occurrence: None)
  Receive Date: 20250402
  Receipt Date: 20250402
  Transmission Date: 20250716
  Serious: Yes (Hospitalization)
  Sender: FDA-CTU
  Company Number: None

PATIENT
  Age: 77 Year
  Sex: Male
  Weight: 101 kg

DRUGS (1)
  1. LEUPROLIDE ACETATE [Suspect]
     Active Substance: LEUPROLIDE ACETATE
     Dates: end: 20250303

REACTIONS (6)
  - Dyspnoea [None]
  - Cough [None]
  - Pulmonary embolism [None]
  - Pyrexia [None]
  - Lung opacity [None]
  - Bronchial wall thickening [None]

NARRATIVE: CASE EVENT DATE: 20250327
